FAERS Safety Report 7740233-X (Version None)
Quarter: 2011Q3

REPORT INFORMATION
  Report Type: 
  Country: None (occurrence: None)
  Receive Date: 20110909
  Receipt Date: 20110901
  Transmission Date: 20111222
  Serious: Yes (Death, Hospitalization, Other)
  Sender: FDA-Public Use
  Company Number: TW-ABBOTT-11P-153-0850326-00

PATIENT
  Sex: Female
  Weight: 60 kg

DRUGS (22)
  1. DONISON [Concomitant]
     Indication: PRODUCT USED FOR UNKNOWN INDICATION
     Dates: start: 20110707
  2. LEVOFLOXACIN [Concomitant]
     Indication: PRODUCT USED FOR UNKNOWN INDICATION
     Dosage: STAT
     Route: 048
     Dates: start: 20110809
  3. HUMIRA [Suspect]
     Indication: RHEUMATOID ARTHRITIS
     Route: 058
     Dates: start: 20100125, end: 20110628
  4. ULTRACET [Concomitant]
     Dosage: ACT 325/TRAMADOL 37.5 BID
     Route: 048
     Dates: start: 20110809
  5. DONISON [Concomitant]
     Route: 048
     Dates: start: 20110809
  6. DIOVAN [Concomitant]
     Indication: PRODUCT USED FOR UNKNOWN INDICATION
     Dates: start: 20110707
  7. ULTRACET [Concomitant]
     Indication: PRODUCT USED FOR UNKNOWN INDICATION
     Dosage: ACT 325/TRAMADOL 37.5- BID
     Dates: start: 20110707
  8. MOBIC [Concomitant]
     Indication: PRODUCT USED FOR UNKNOWN INDICATION
     Dates: start: 20110707
  9. SULFASALAZINE [Concomitant]
     Indication: PRODUCT USED FOR UNKNOWN INDICATION
     Dates: start: 20110707
  10. FOLIC ACID [Concomitant]
     Route: 048
     Dates: start: 20110809
  11. IWELL [Concomitant]
     Indication: PRODUCT USED FOR UNKNOWN INDICATION
     Dates: start: 20110707
  12. IWELL [Concomitant]
     Route: 048
     Dates: start: 20110809
  13. LEVOFLOXACIN [Concomitant]
     Dosage: QD-AM/AC
     Route: 048
     Dates: start: 20110809
  14. MOBIC [Concomitant]
     Route: 048
     Dates: start: 20110809
  15. DEXTROMETHORPLAN SR [Concomitant]
     Indication: PRODUCT USED FOR UNKNOWN INDICATION
     Dates: start: 20110707
  16. ARAVA [Concomitant]
     Indication: PRODUCT USED FOR UNKNOWN INDICATION
     Dates: start: 20110707
  17. PROMERAN [Concomitant]
     Indication: PRODUCT USED FOR UNKNOWN INDICATION
     Route: 048
     Dates: start: 20110809
  18. SULFASALAZINE [Concomitant]
     Route: 048
     Dates: start: 20110809
  19. METHOTREXATE [Concomitant]
     Indication: PRODUCT USED FOR UNKNOWN INDICATION
     Dates: start: 20110707
  20. FOLIC ACID [Concomitant]
     Indication: PRODUCT USED FOR UNKNOWN INDICATION
     Dates: start: 20110707
  21. GASCON [Concomitant]
     Indication: PRODUCT USED FOR UNKNOWN INDICATION
     Route: 048
     Dates: start: 20110809
  22. BROWN MIXTURE [Concomitant]
     Indication: PRODUCT USED FOR UNKNOWN INDICATION
     Dosage: 100 CC- QID
     Route: 048
     Dates: start: 20110809

REACTIONS (3)
  - ACINETOBACTER INFECTION [None]
  - PNEUMONIA [None]
  - URINARY TRACT INFECTION [None]
